FAERS Safety Report 21688765 (Version 9)
Quarter: 2023Q2

REPORT INFORMATION
  Report Type: Report from Study
  Country: US (occurrence: US)
  Receive Date: 20221206
  Receipt Date: 20230619
  Transmission Date: 20230722
  Serious: Yes (Hospitalization)
  Sender: FDA-Public Use
  Company Number: US-BoehringerIngelheim-2022-BI-146571

PATIENT
  Age: 81 Year
  Sex: Male

DRUGS (5)
  1. OFEV [Suspect]
     Active Substance: NINTEDANIB
     Indication: Idiopathic pulmonary fibrosis
     Route: 048
     Dates: start: 20211220
  2. OFEV [Suspect]
     Active Substance: NINTEDANIB
     Route: 048
  3. OFEV [Suspect]
     Active Substance: NINTEDANIB
     Route: 048
  4. OFEV [Suspect]
     Active Substance: NINTEDANIB
     Dosage: PATIENT STATES HE TAKE ONE OFEV TABLET ONCE A DAY, NEXT DAY HE TAKES OFEV TWICE DAILY,
  5. ELIQUIS [Concomitant]
     Active Substance: APIXABAN

REACTIONS (20)
  - Internal haemorrhage [Recovered/Resolved]
  - Diarrhoea [Unknown]
  - Ligament sprain [Recovered/Resolved]
  - Diarrhoea [Recovered/Resolved]
  - Abdominal discomfort [Recovered/Resolved]
  - Food intolerance [Recovered/Resolved]
  - Abdominal discomfort [Unknown]
  - Taste disorder [Unknown]
  - Decreased appetite [Unknown]
  - Weight decreased [Unknown]
  - Dyspnoea exertional [Recovering/Resolving]
  - Gastric disorder [Recovered/Resolved]
  - Pneumonia [Recovered/Resolved]
  - Abdominal pain [Recovered/Resolved]
  - Sinus disorder [Recovered/Resolved]
  - Abdominal pain upper [Recovered/Resolved]
  - Nausea [Recovered/Resolved]
  - Rash [Recovered/Resolved]
  - Oxygen saturation decreased [Unknown]
  - Rash [Unknown]

NARRATIVE: CASE EVENT DATE: 20211201
